FAERS Safety Report 5768716-2 (Version None)
Quarter: 2008Q2

REPORT INFORMATION
  Report Type: 
  Country: None (occurrence: None)
  Receive Date: 20080612
  Receipt Date: 20080609
  Transmission Date: 20081010
  Serious: Yes (Hospitalization)
  Sender: FDA-Public Use
  Company Number: JP-BOEHRINGER INGELHEIM GMBH, GERMANY-2008-BP-06593NB

PATIENT
  Sex: Male
  Weight: 73 kg

DRUGS (2)
  1. MICARDIS [Suspect]
     Indication: HYPERTENSION
     Route: 048
     Dates: start: 20070125, end: 20070525
  2. ATELEC [Concomitant]
     Indication: HYPERTENSION
     Route: 048
     Dates: start: 20061201, end: 20070525

REACTIONS (1)
  - CEREBRAL INFARCTION [None]
